FAERS Safety Report 8166753-4 (Version None)
Quarter: 2012Q1

REPORT INFORMATION
  Report Type: 
  Country: None (occurrence: None)
  Receive Date: 20120227
  Receipt Date: 20120221
  Transmission Date: 20120608
  Serious: Yes (Life-Threatening)
  Sender: FDA-Public Use
  Company Number: IT-BRACCO-001649

PATIENT
  Sex: Female

DRUGS (1)
  1. IOPAMIDOL [Suspect]
     Indication: INTRACRANIAL ANEURYSM
     Route: 042
     Dates: start: 20120217, end: 20120217

REACTIONS (3)
  - ANGIOEDEMA [None]
  - ANAPHYLACTOID REACTION [None]
  - LARYNGEAL OEDEMA [None]
